FAERS Safety Report 12388647 (Version 2)
Quarter: 2016Q2

REPORT INFORMATION
  Report Type: Spontaneous
  Country: US (occurrence: US)
  Receive Date: 20160520
  Receipt Date: 20160530
  Transmission Date: 20160815
  Serious: No
  Sender: FDA-Public Use
  Company Number: US-PFIZER INC-3238001

PATIENT
  Sex: Male

DRUGS (2)
  1. LIDOCAINE HCL [Suspect]
     Active Substance: LIDOCAINE HYDROCHLORIDE
     Indication: MEDICATION DILUTION
     Dosage: TOTAL OF 4ML WITH CEFTRIAXONE
     Route: 030
  2. CEFTRIAXONE SODIUM. [Suspect]
     Active Substance: CEFTRIAXONE SODIUM
     Indication: ANTIBIOTIC PROPHYLAXIS
     Dosage: DILUTED IN LIDOCAINE TOTAL OF 4 ML
     Route: 030

REACTIONS (4)
  - Incorrect dose administered [Unknown]
  - Hypotension [Unknown]
  - Nausea [Unknown]
  - Tremor [Unknown]
